FAERS Safety Report 17058755 (Version 1)
Quarter: 2019Q4

REPORT INFORMATION
  Report Type: Report from Study
  Country: US (occurrence: US)
  Receive Date: 20191121
  Receipt Date: 20191121
  Transmission Date: 20200122
  Serious: Yes (Life-Threatening, Other)
  Sender: FDA-Public Use
  Company Number: US-ROCHE-1739201

PATIENT

DRUGS (1)
  1. BEVACIZUMAB. [Suspect]
     Active Substance: BEVACIZUMAB
     Indication: GLIOBLASTOMA
     Route: 042

REACTIONS (13)
  - Neutrophil count decreased [Recovered/Resolved]
  - Aphasia [Unknown]
  - Headache [Recovered/Resolved]
  - Hypertension [Recovered/Resolved]
  - Lymphocyte count decreased [Unknown]
  - Paraesthesia [Unknown]
  - Dysarthria [Unknown]
  - Platelet count decreased [Recovered/Resolved]
  - Rash maculo-papular [Recovered/Resolved]
  - White blood cell count decreased [Recovered/Resolved]
  - Seizure [Recovered/Resolved]
  - Pyramidal tract syndrome [Recovered/Resolved]
  - Pyrexia [Recovered/Resolved]

NARRATIVE: CASE EVENT DATE: 20130718
